FAERS Safety Report 10723085 (Version 3)
Quarter: 2015Q1

REPORT INFORMATION
  Report Type: Spontaneous
  Country: GB (occurrence: None)
  Receive Date: 20150114
  Receipt Date: 20150325
  Transmission Date: 20150721
  Serious: Yes (Other)
  Sender: FDA-Public Use
  Company Number: GB-DEXPHARM-20141068

PATIENT
  Sex: Female

DRUGS (3)
  1. LEVOTHYROXINE [Concomitant]
     Active Substance: LEVOTHYROXINE
  2. OMEPRAZOLE. [Suspect]
     Active Substance: OMEPRAZOLE
     Indication: GASTROOESOPHAGEAL REFLUX DISEASE
     Dosage: 20 MG, UNK, 20 MG MILLIGRAM(S), ORAL
     Route: 048
     Dates: end: 20141203
  3. OMEPRAZOLE (OMEPRAZOLE) [Suspect]
     Active Substance: OMEPRAZOLE
     Dosage: 40 MG, UNK, 40 MG MILLIGRAM (S), CAPSULE

REACTIONS (16)
  - Abdominal pain [None]
  - Dysgeusia [None]
  - Feeling abnormal [None]
  - Dyspepsia [None]
  - Benign hepatic neoplasm [None]
  - Malaise [None]
  - Nausea [None]
  - Dry throat [None]
  - Gastrooesophageal reflux disease [None]
  - Weight decreased [None]
  - Throat tightness [None]
  - Treatment noncompliance [None]
  - Chest pain [None]
  - Oropharyngeal pain [None]
  - Gait disturbance [None]
  - Drug prescribing error [None]

NARRATIVE: CASE EVENT DATE: 201410
